FAERS Safety Report 10341640 (Version 1)
Quarter: 2014Q3

REPORT INFORMATION
  Report Type: Report from Study
  Country: BR (occurrence: BR)
  Receive Date: 20140725
  Receipt Date: 20140725
  Transmission Date: 20150326
  Serious: Yes (Other)
  Sender: FDA-Public Use
  Company Number: PHHY2014BR091129

PATIENT
  Sex: Female
  Weight: 56 kg

DRUGS (4)
  1. ACLASTA [Suspect]
     Active Substance: ZOLEDRONIC ACID
     Indication: OSTEOPOROSIS
     Dosage: UNK UKN, UNK (ONCE A YEAR)
     Route: 042
     Dates: start: 2010
  2. AMITRIPTYLLIN [Concomitant]
     Indication: ANXIETY
     Dosage: 0.5 DF, DAILY
     Dates: start: 2011
  3. CALCIUM D3 SANDOZ [Suspect]
     Active Substance: CALCIUM\CHOLECALCIFEROL
     Indication: OSTEOPOROSIS
     Dosage: 1 DF, DAILY
     Dates: start: 2012
  4. RIVOTRIL [Concomitant]
     Active Substance: CLONAZEPAM
     Indication: NERVOUSNESS
     Dosage: 1 DF, DAILY
     Dates: start: 2011

REACTIONS (3)
  - Arrhythmia [Not Recovered/Not Resolved]
  - Cardiomegaly [Not Recovered/Not Resolved]
  - Urinary tract infection [Not Recovered/Not Resolved]
